FAERS Safety Report 10882170 (Version 1)
Quarter: 2015Q1

REPORT INFORMATION
  Report Type: Spontaneous
  Country: US (occurrence: None)
  Receive Date: 20150226
  Receipt Date: 20150226
  Transmission Date: 20150721
  Serious: Yes (Hospitalization)
  Sender: FDA-Public Use
  Company Number: None

PATIENT
  Age: 24 Year
  Sex: Female
  Weight: 52.8 kg

DRUGS (2)
  1. N-ACETYLCYSTEINE [Suspect]
     Active Substance: ACETYLCYSTEINE
     Route: 048
  2. DOCETAXEL. [Suspect]
     Active Substance: DOCETAXEL
     Route: 042

REACTIONS (5)
  - Pneumonia [None]
  - Malaise [None]
  - Pneumonia aspiration [None]
  - Local swelling [None]
  - Lung infection [None]

NARRATIVE: CASE EVENT DATE: 20150220
